FAERS Safety Report 8228614-1 (Version None)
Quarter: 2012Q1

REPORT INFORMATION
  Report Type: 
  Country: None (occurrence: None)
  Receive Date: 20120322
  Receipt Date: 20110303
  Transmission Date: 20120608
  Serious: No
  Sender: FDA-Public Use
  Company Number: US-BRISTOL-MYERS SQUIBB COMPANY-15589971

PATIENT

DRUGS (1)
  1. ERBITUX [Suspect]
     Dates: start: 20110131

REACTIONS (3)
  - GASTROINTESTINAL PAIN [None]
  - DIARRHOEA [None]
  - ASCITES [None]
